FAERS Safety Report 5974395-1 (Version None)
Quarter: 2008Q4

REPORT INFORMATION
  Report Type: 
  Country: None (occurrence: None)
  Receive Date: 20081201
  Receipt Date: 20081120
  Transmission Date: 20090506
  Serious: Yes (Life-Threatening, Hospitalization, Other)
  Sender: FDA-Public Use
  Company Number: JP-PFIZER INC-2008096275

PATIENT
  Sex: Female

DRUGS (3)
  1. CHAMPIX [Suspect]
     Indication: SMOKING CESSATION THERAPY
     Route: 048
     Dates: start: 20081001, end: 20081110
  2. CHAMPIX [Suspect]
     Indication: NICOTINE DEPENDENCE
  3. DRUG, UNSPECIFIED [Concomitant]

REACTIONS (10)
  - DEPRESSED LEVEL OF CONSCIOUSNESS [None]
  - DEPRESSIVE SYMPTOM [None]
  - HEPATIC FUNCTION ABNORMAL [None]
  - INFLAMMATION [None]
  - INTENTIONAL OVERDOSE [None]
  - MULTIPLE DRUG OVERDOSE INTENTIONAL [None]
  - NAUSEA [None]
  - PNEUMONIA ASPIRATION [None]
  - SHOCK [None]
  - SUICIDE ATTEMPT [None]
